FAERS Safety Report 10186760 (Version 1)
Quarter: 2014Q2

REPORT INFORMATION
  Report Type: Spontaneous
  Country: FR (occurrence: FR)
  Receive Date: 20140521
  Receipt Date: 20140521
  Transmission Date: 20141212
  Serious: Yes (Other)
  Sender: FDA-Public Use
  Company Number: PHHY2014FR060953

PATIENT
  Sex: Female

DRUGS (2)
  1. GILENYA [Suspect]
     Route: 048
  2. SEROPLEX [Suspect]

REACTIONS (2)
  - Weight decreased [Unknown]
  - Alopecia [Unknown]
